FAERS Safety Report 23187629 (Version 1)
Quarter: 2023Q4

REPORT INFORMATION
  Report Type: Spontaneous
  Country: US (occurrence: None)
  Receive Date: 20231115
  Receipt Date: 20231115
  Transmission Date: 20240110
  Serious: No
  Sender: FDA-Public Use
  Company Number: None

PATIENT
  Age: 60 Year
  Sex: Male

DRUGS (11)
  1. PRALUENT [Suspect]
     Active Substance: ALIROCUMAB
     Dates: start: 20210824
  2. AMLODIPINE BESYLATE [Concomitant]
     Active Substance: AMLODIPINE BESYLATE
  3. ANASPAZ [Concomitant]
     Active Substance: HYOSCYAMINE SULFATE
  4. ASPIRIN [Concomitant]
     Active Substance: ASPIRIN
  5. GLIMEPIRIDE [Concomitant]
     Active Substance: GLIMEPIRIDE
  6. CLOPIDOGREL [Concomitant]
     Active Substance: CLOPIDOGREL BISULFATE
  7. COREG CR [Concomitant]
     Active Substance: CARVEDILOL PHOSPHATE
  8. CRANBERRY [Concomitant]
     Active Substance: CRANBERRY
  9. FLAXSEED [Concomitant]
     Active Substance: FLAX SEED
  10. GABAPENTIN [Concomitant]
     Active Substance: GABAPENTIN
  11. HUMALOG [Concomitant]
     Active Substance: INSULIN LISPRO

REACTIONS (1)
  - Muscle spasms [None]

NARRATIVE: CASE EVENT DATE: 20231101
